FAERS Safety Report 8392084 (Version 2)
Quarter: 2014Q3

REPORT INFORMATION
  Report Type: Spontaneous
  Country: US (occurrence: US)
  Receive Date: 20120206
  Receipt Date: 20140709
  Transmission Date: 20150326
  Serious: Yes (Hospitalization)
  Sender: FDA-Public Use
  Company Number: US-GLAXOSMITHKLINE-A0892645A

PATIENT
  Sex: Female
  Weight: 71.8 kg

DRUGS (2)
  1. AVANDIA [Suspect]
     Active Substance: ROSIGLITAZONE MALEATE
     Indication: DIABETES MELLITUS
     Dosage: 4MG TWICE PER DAY
     Route: 048
     Dates: start: 20060718, end: 20090615
  2. GLIPIZIDE. [Concomitant]
     Active Substance: GLIPIZIDE
     Dates: start: 200607

REACTIONS (4)
  - Cardiac failure congestive [Unknown]
  - Coronary artery bypass [Unknown]
  - Cardiomyopathy [Unknown]
  - Acute myocardial infarction [Not Recovered/Not Resolved]
